FAERS Safety Report 14759298 (Version 1)
Quarter: 2018Q2

REPORT INFORMATION
  Report Type: Spontaneous
  Country: RU (occurrence: RU)
  Receive Date: 20180413
  Receipt Date: 20180413
  Transmission Date: 20180711
  Serious: Yes (Other)
  Sender: FDA-Public Use
  Company Number: RU-PFIZER INC-2018146889

PATIENT
  Sex: Female

DRUGS (1)
  1. BOSUTINIB [Suspect]
     Active Substance: BOSUTINIB
     Dosage: UNK
     Dates: start: 20160607

REACTIONS (4)
  - Diarrhoea [Unknown]
  - Arrhythmia [Recovering/Resolving]
  - Arthralgia [Unknown]
  - Blood pressure fluctuation [Unknown]
